FAERS Safety Report 4979518-9 (Version None)
Quarter: 2006Q2

REPORT INFORMATION
  Report Type: 
  Country: None (occurrence: None)
  Receive Date: 20060418
  Receipt Date: 20060407
  Transmission Date: 20061013
  Serious: Yes (Other)
  Sender: FDA-Public Use
  Company Number: DE200604001312

PATIENT
  Age: 44 Year
  Sex: Female

DRUGS (2)
  1. ZYPREXA [Suspect]
     Indication: SCHIZOPHRENIA
     Dosage: SEE IMAGE
     Route: 048
     Dates: end: 20060201
  2. ZYPREXA [Suspect]
     Indication: SCHIZOPHRENIA
     Dosage: SEE IMAGE
     Route: 048
     Dates: start: 20051101

REACTIONS (1)
  - LEUKOPENIA [None]
